FAERS Safety Report 7363231-7 (Version None)
Quarter: 2011Q1

REPORT INFORMATION
  Report Type: 
  Country: None (occurrence: None)
  Receive Date: 20110309
  Receipt Date: 20110222
  Transmission Date: 20110831
  Serious: Yes (Other)
  Sender: FDA-Public Use
  Company Number: AUR-APL-2011-00636

PATIENT
  Age: 53 Year
  Sex: Female

DRUGS (1)
  1. CEFUROXIME [Suspect]
     Indication: EAR INFECTION
     Dosage: 500MG-BID-ORAL
     Route: 048
     Dates: start: 20110217, end: 20110222

REACTIONS (9)
  - PRODUCT TASTE ABNORMAL [None]
  - FOREIGN BODY [None]
  - DRUG INEFFECTIVE [None]
  - BURNING SENSATION [None]
  - VOMITING [None]
  - PRODUCT QUALITY ISSUE [None]
  - SINUSITIS [None]
  - CHOKING [None]
  - DYSPHONIA [None]
